FAERS Safety Report 11643566 (Version 1)
Quarter: 2015Q4

REPORT INFORMATION
  Report Type: Report from Study
  Country: US (occurrence: US)
  Receive Date: 20151020
  Receipt Date: 20151020
  Transmission Date: 20160304
  Serious: No
  Sender: FDA-Public Use
  Company Number: US-AMGEN-USASL2015108227

PATIENT
  Age: 58 Year
  Sex: Female

DRUGS (1)
  1. ENBREL [Suspect]
     Active Substance: ETANERCEPT
     Indication: RHEUMATOID ARTHRITIS
     Dosage: 50 MG, QWK
     Route: 065
     Dates: start: 2004

REACTIONS (7)
  - Infection [Unknown]
  - Ear discomfort [Unknown]
  - Aphonia [Unknown]
  - Ear pain [Unknown]
  - Respiratory disorder [Unknown]
  - Ear congestion [Recovering/Resolving]
  - Ear infection [Unknown]

NARRATIVE: CASE EVENT DATE: 2015
